FAERS Safety Report 25148968 (Version 1)
Quarter: 2025Q2

REPORT INFORMATION
  Report Type: Spontaneous
  Country: GB (occurrence: GB)
  Receive Date: 20250402
  Receipt Date: 20250402
  Transmission Date: 20250716
  Serious: Yes (Other)
  Sender: RANBAXY
  Company Number: GB-SUN PHARMACEUTICAL INDUSTRIES LTD-2025R1-500323

PATIENT
  Age: 21 Year
  Sex: Female
  Weight: 61 kg

DRUGS (8)
  1. DUAC [Suspect]
     Active Substance: BENZOYL PEROXIDE\CLINDAMYCIN PHOSPHATE
     Indication: Ill-defined disorder
     Route: 065
     Dates: start: 20230824
  2. BETNOVATE [Concomitant]
     Active Substance: BETAMETHASONE
     Indication: Product used for unknown indication
     Route: 065
     Dates: start: 20250305
  3. EPIPEN [Concomitant]
     Active Substance: EPINEPHRINE
     Indication: Product used for unknown indication
     Route: 065
     Dates: start: 20210310
  4. Dermax [Concomitant]
     Indication: Product used for unknown indication
     Route: 065
     Dates: start: 20240926
  5. AZELAIC ACID [Concomitant]
     Active Substance: AZELAIC ACID
     Indication: Product used for unknown indication
     Route: 065
     Dates: start: 20240926
  6. Cetraben [Concomitant]
     Indication: Product used for unknown indication
     Route: 065
     Dates: start: 20240926
  7. MOMETASONE [Concomitant]
     Active Substance: MOMETASONE
     Indication: Product used for unknown indication
     Route: 065
     Dates: start: 20240926
  8. CLINDAMYCIN PHOSPHATE\TRETINOIN [Concomitant]
     Active Substance: CLINDAMYCIN PHOSPHATE\TRETINOIN
     Indication: Product used for unknown indication
     Route: 065
     Dates: start: 20240926, end: 20250305

REACTIONS (1)
  - Angioedema [Unknown]
